FAERS Safety Report 5989068-9 (Version None)
Quarter: 2008Q4

REPORT INFORMATION
  Report Type: 
  Country: None (occurrence: None)
  Receive Date: 20081204
  Receipt Date: 20081125
  Transmission Date: 20090506
  Serious: No
  Sender: FDA-Public Use
  Company Number: 2008-187448-NL

PATIENT
  Sex: Female

DRUGS (2)
  1. MIRTAZAPINE [Suspect]
     Indication: FIBROMYALGIA
     Dosage: 10 MG QD, ORAL
     Route: 048
  2. MIRTAZAPINE [Suspect]
     Indication: PAIN MANAGEMENT
     Dosage: 10 MG QD, ORAL
     Route: 048

REACTIONS (1)
  - HEART RATE IRREGULAR [None]
